FAERS Safety Report 4616555-8 (Version None)
Quarter: 2005Q2

REPORT INFORMATION
  Report Type: 
  Country: None (occurrence: None)
  Receive Date: 20050311
  Receipt Date: 20050131
  Transmission Date: 20051028
  Serious: No
  Sender: FDA-Public Use
  Company Number: M04-341-127

PATIENT
  Age: 79 Year
  Sex: Female

DRUGS (4)
  1. VELCADE [Suspect]
     Indication: MULTIPLE MYELOMA
     Dosage: 2.50 MG, IV BOLUS;  2.00 MG, IV BOLUS;  2.50 MG, IV BOLUS;  2.00 MG
     Route: 040
     Dates: start: 20040329, end: 20040423
  2. VELCADE [Suspect]
     Indication: MULTIPLE MYELOMA
     Dosage: 2.50 MG, IV BOLUS;  2.00 MG, IV BOLUS;  2.50 MG, IV BOLUS;  2.00 MG
     Route: 040
     Dates: start: 20040426
  3. VELCADE [Suspect]
     Indication: MULTIPLE MYELOMA
     Dosage: 2.50 MG, IV BOLUS;  2.00 MG, IV BOLUS;  2.50 MG, IV BOLUS;  2.00 MG
     Route: 040
     Dates: start: 20040513
  4. VELCADE [Suspect]
     Indication: MULTIPLE MYELOMA
     Dosage: 2.50 MG, IV BOLUS;  2.00 MG, IV BOLUS;  2.50 MG, IV BOLUS;  2.00 MG
     Route: 040
     Dates: start: 20040601

REACTIONS (6)
  - DIARRHOEA [None]
  - INJECTION SITE DISCOLOURATION [None]
  - MUSCLE SPASMS [None]
  - RASH ERYTHEMATOUS [None]
  - THROMBOCYTOPENIA [None]
  - URTICARIA [None]
